FAERS Safety Report 7939224-5 (Version None)
Quarter: 2011Q4

REPORT INFORMATION
  Report Type: 
  Country: None (occurrence: None)
  Receive Date: 20111124
  Receipt Date: 20111121
  Transmission Date: 20120403
  Serious: Yes (Hospitalization)
  Sender: FDA-Public Use
  Company Number: US-ELI_LILLY_AND_COMPANY-US201105000665

PATIENT
  Sex: Female
  Weight: 98.413 kg

DRUGS (14)
  1. DIOVAN [Concomitant]
     Dosage: 160 MG, UNKNOWN
  2. LYRICA [Concomitant]
     Dosage: 100 MG, UNKNOWN
  3. SPIRONOLACTONE [Concomitant]
     Dosage: 100 MG, UNKNOWN
  4. ZANTAC [Concomitant]
  5. LANTUS [Concomitant]
  6. FUROSEMIDE [Concomitant]
     Dosage: 20 MG, UNKNOWN
  7. ZYRTEC [Concomitant]
  8. ADCIRCA [Suspect]
     Indication: PULMONARY HYPERTENSION
     Dosage: 40 MG, QD
     Dates: start: 20110406
  9. NOVOLOG [Concomitant]
  10. SIMVASTATIN [Concomitant]
  11. ADCIRCA [Suspect]
     Dosage: 40 MG, QD
  12. ISOSORBIDE DINITRATE [Concomitant]
     Dosage: 30 MG, UNKNOWN
  13. COREG [Concomitant]
     Dosage: 12.5 MG, UNKNOWN
  14. ASPIRIN [Concomitant]

REACTIONS (7)
  - MITRAL VALVE INCOMPETENCE [None]
  - DIARRHOEA [None]
  - ABDOMINAL DISTENSION [None]
  - ABDOMINAL PAIN UPPER [None]
  - ABNORMAL FAECES [None]
  - DYSPEPSIA [None]
  - FAECAL INCONTINENCE [None]
